FAERS Safety Report 5269120-6 (Version None)
Quarter: 2007Q1

REPORT INFORMATION
  Report Type: 
  Country: None (occurrence: None)
  Receive Date: 20061213
  Receipt Date: 20030722
  Transmission Date: 20070707
  Serious: Yes (Other)
  Sender: FDA-Public Use
  Company Number: 2003UW09265

PATIENT
  Age: 92 Year
  Sex: Male
  Weight: 61.2356 kg

DRUGS (6)
  1. IRESSA [Suspect]
     Dates: start: 20030602
  2. TOPROL-XL [Concomitant]
  3. DIGITEK [Concomitant]
  4. ALLOPURINOL [Concomitant]
  5. LASIX [Concomitant]
  6. PROCRIT [Concomitant]

REACTIONS (8)
  - ANOREXIA [None]
  - CONFUSIONAL STATE [None]
  - DISORIENTATION [None]
  - FEELING ABNORMAL [None]
  - HALLUCINATION [None]
  - LETHARGY [None]
  - PRURITUS [None]
  - WEIGHT DECREASED [None]
